FAERS Safety Report 10873594 (Version 1)
Quarter: 2015Q1

REPORT INFORMATION
  Report Type: Report from Study
  Country: KR (occurrence: None)
  Receive Date: 20150224
  Receipt Date: 20150224
  Transmission Date: 20150721
  Serious: Yes (Death, Hospitalization, Other)
  Sender: FDA-Public Use
  Company Number: 2015-10691

PATIENT
  Age: 73 Year
  Sex: Male

DRUGS (6)
  1. EYLEA [Suspect]
     Active Substance: AFLIBERCEPT
     Indication: POLYPOIDAL CHOROIDAL VASCULOPATHY
     Dosage: 11.12 MG/V, Q1MON, INTRACULAR
     Route: 031
     Dates: start: 20140428, end: 20140827
  2. CALTRATE + D (CALCIUM CARBONATE, VITAMIN D NOS) [Concomitant]
  3. FOLIC ACID. [Concomitant]
     Active Substance: FOLIC ACID
  4. ULTRACEF (CEFADROXIL) [Concomitant]
  5. PREDNISOLON (PREDNISOLONE) [Concomitant]
  6. ALBIS (RANITIDINE HYDROCHLORIDE, SUCRALFATE, TRIPOTASSIUM DICITRATOBISMUTHATE) [Concomitant]

REACTIONS (2)
  - Cerebrovascular accident [None]
  - Pneumonia [None]

NARRATIVE: CASE EVENT DATE: 201409
